FAERS Safety Report 15548630 (Version 1)
Quarter: 2018Q4

REPORT INFORMATION
  Report Type: Spontaneous
  Country: US (occurrence: US)
  Receive Date: 20181025
  Receipt Date: 20181025
  Transmission Date: 20190205
  Serious: No
  Sender: FDA-Public Use
  Company Number: US-TRIS PHARMA, INC.-2018TRISPO00714

PATIENT

DRUGS (1)
  1. HYDROCODONE + APAP [Suspect]
     Active Substance: ACETAMINOPHEN\HYDROCODONE BITARTRATE
     Indication: PRODUCT USED FOR UNKNOWN INDICATION
     Dosage: UNK
     Route: 065

REACTIONS (7)
  - Eye pruritus [Unknown]
  - Dry skin [Unknown]
  - Dry mouth [Unknown]
  - Dysphagia [Unknown]
  - Throat irritation [Unknown]
  - Pain [Unknown]
  - Drug ineffective [Unknown]
